FAERS Safety Report 6108837-8 (Version None)
Quarter: 2009Q1

REPORT INFORMATION
  Report Type: 
  Country: None (occurrence: None)
  Receive Date: 20090306
  Receipt Date: 20090303
  Transmission Date: 20090719
  Serious: Yes (Hospitalization)
  Sender: FDA-Public Use
  Company Number: 2009SP002677

PATIENT
  Age: 58 Year
  Sex: Female

DRUGS (4)
  1. PEGETRON (PEGINTERFERON ALFA-2B W/RIBAVIRIN) (PEGYLATED INTERFERON ALF [Suspect]
     Indication: HEPATITIS C
     Dosage: ; SC, 1000 MG; QD; PO
     Route: 048
     Dates: start: 20080925
  2. PEGETRON (PEGINTERFERON ALFA-2B W/RIBAVIRIN) (PEGYLATED INTERFERON ALF [Suspect]
     Indication: HEPATITIS C
     Dosage: ; SC, 1000 MG; QD; PO
     Route: 048
     Dates: start: 20080925
  3. TYLENOL [Concomitant]
  4. EFFEXOR [Concomitant]

REACTIONS (6)
  - ANAEMIA [None]
  - CHEMICAL POISONING [None]
  - DIZZINESS [None]
  - EROSIVE OESOPHAGITIS [None]
  - SOMNOLENCE [None]
  - WRONG DRUG ADMINISTERED [None]
